FAERS Safety Report 5508577-X (Version None)
Quarter: 2007Q4

REPORT INFORMATION
  Report Type: 
  Country: None (occurrence: None)
  Receive Date: 20071105
  Receipt Date: 20071022
  Transmission Date: 20080405
  Serious: Yes (Life-Threatening)
  Sender: FDA-Public Use
  Company Number: 02100-JPN-06-0512

PATIENT
  Age: 58 Year
  Sex: Male

DRUGS (2)
  1. CILOSTAZOL [Suspect]
     Indication: CEREBRAL INFARCTION
     Dosage: 200 MG, ORAL
     Route: 048
     Dates: start: 20040326
  2. ASPIRIN [Concomitant]

REACTIONS (2)
  - CEREBRAL INFARCTION [None]
  - LOSS OF CONSCIOUSNESS [None]
